FAERS Safety Report 23594920 (Version 1)
Quarter: 2024Q1

REPORT INFORMATION
  Report Type: Spontaneous
  Country: JP (occurrence: JP)
  Receive Date: 20240305
  Receipt Date: 20240305
  Transmission Date: 20240410
  Serious: Yes (Other)
  Sender: FDA-Public Use
  Company Number: JP-ONO-2024JP004220

PATIENT
  Age: 74 Year
  Sex: Male

DRUGS (9)
  1. YERVOY [Suspect]
     Active Substance: IPILIMUMAB
     Indication: Metastatic renal cell carcinoma
     Dosage: UNK
     Route: 042
     Dates: start: 202012
  2. OPDIVO [Suspect]
     Active Substance: NIVOLUMAB
     Indication: Metastatic renal cell carcinoma
     Dosage: UNK
     Route: 041
     Dates: start: 202012
  3. OPDIVO [Suspect]
     Active Substance: NIVOLUMAB
     Dosage: UNK
     Route: 041
     Dates: start: 202103
  4. EDOXABAN TOSYLATE [Concomitant]
     Active Substance: EDOXABAN TOSYLATE
     Dosage: ORAL DRUG UNSPECIFIED FORM
     Route: 048
  5. CILNIDIPINE [Concomitant]
     Active Substance: CILNIDIPINE
     Dosage: ORAL DRUG UNSPECIFIED FORM
     Route: 048
  6. SILODOSIN [Concomitant]
     Active Substance: SILODOSIN
     Dosage: ORAL DRUG UNSPECIFIED FORM
     Route: 048
  7. VONOPRAZAN FUMARATE [Concomitant]
     Active Substance: VONOPRAZAN FUMARATE
     Dosage: ORAL DRUG UNSPECIFIED FORM
     Route: 048
  8. BIOFERMIN [BIFIDOBACTERIUM NOS] [Concomitant]
     Dosage: ORAL DRUG UNSPECIFIED FORM
     Route: 048
  9. SHAKUYAKUKANZOTO [Concomitant]
     Active Substance: HERBALS
     Dosage: ORAL DRUG UNSPECIFIED FORM
     Route: 048

REACTIONS (2)
  - Pemphigoid [Recovering/Resolving]
  - Rash maculo-papular [Recovering/Resolving]

NARRATIVE: CASE EVENT DATE: 20200101
